FAERS Safety Report 5149347-4 (Version None)
Quarter: 2006Q4

REPORT INFORMATION
  Report Type: 
  Country: None (occurrence: None)
  Receive Date: 20061113
  Receipt Date: 20051115
  Transmission Date: 20070319
  Serious: No
  Sender: FDA-Public Use
  Company Number: 425150

PATIENT
  Age: 78 Year
  Sex: Female

DRUGS (10)
  1. COREG [Suspect]
     Dosage: 12.5MG TWICE PER DAY
     Route: 048
     Dates: start: 20040701
  2. UNKNOWN MEDICATION [Concomitant]
  3. DIGOXIN [Concomitant]
  4. SYNTHROID [Concomitant]
  5. COUMADIN [Concomitant]
  6. FOLIC ACID [Concomitant]
  7. AMIODARONE HCL [Concomitant]
  8. ENALAPRIL MALEATE [Concomitant]
  9. PREVACID [Concomitant]
  10. XANAX [Concomitant]

REACTIONS (1)
  - ALOPECIA [None]
